FAERS Safety Report 18628021 (Version 1)
Quarter: 2020Q4

REPORT INFORMATION
  Report Type: Report from Study
  Country: US (occurrence: US)
  Receive Date: 20201217
  Receipt Date: 20201217
  Transmission Date: 20210114
  Serious: Yes (Hospitalization)
  Sender: FDA-Public Use
  Company Number: NVSC2020US333403

PATIENT
  Age: 62 Year
  Sex: Female

DRUGS (2)
  1. BAF312 COMP-BAF+ [Suspect]
     Active Substance: SIPONIMOD
     Indication: SECONDARY PROGRESSIVE MULTIPLE SCLEROSIS
     Dosage: 2 MG, QD
     Route: 048
     Dates: start: 20160406, end: 20201204
  2. MAYZENT [Suspect]
     Active Substance: SIPONIMOD
     Indication: SECONDARY PROGRESSIVE MULTIPLE SCLEROSIS
     Dosage: UNK
     Route: 048
     Dates: start: 20140313, end: 20160310

REACTIONS (4)
  - Hallucination [Recovering/Resolving]
  - Psychotic disorder [Recovering/Resolving]
  - Paranoia [Recovering/Resolving]
  - Delusional disorder, unspecified type [Recovering/Resolving]

NARRATIVE: CASE EVENT DATE: 20201204
